FAERS Safety Report 5562519-X (Version None)
Quarter: 2007Q4

REPORT INFORMATION
  Report Type: 
  Country: None (occurrence: None)
  Receive Date: 20071217
  Receipt Date: 20071206
  Transmission Date: 20080405
  Serious: Yes (Hospitalization)
  Sender: FDA-Public Use
  Company Number: US-JNJFOC-20071202334

PATIENT
  Sex: Female
  Weight: 89.81 kg

DRUGS (15)
  1. FENTANYL TRANSDERMAL SYSTEM [Suspect]
     Indication: BACK PAIN
     Route: 062
  2. DURAGESIC-100 [Suspect]
     Indication: BACK PAIN
     Route: 062
  3. LIDOCAINE [Concomitant]
     Indication: PAIN
     Route: 062
  4. TINCTURE OF OPIUM [Concomitant]
     Indication: DIARRHOEA
     Dosage: 1 DOSE = 1 TEASPOON
     Route: 048
  5. PERCOCET [Concomitant]
     Indication: BREAKTHROUGH PAIN
     Dosage: 10MG/650MG
     Route: 048
  6. AMBIEN [Concomitant]
     Indication: SLEEP DISORDER
     Route: 048
  7. SOMA [Concomitant]
     Indication: MUSCLE RELAXANT THERAPY
     Route: 048
  8. HYOSCYAMINE [Concomitant]
     Indication: GASTRIC DISORDER
     Route: 048
  9. XANAX [Concomitant]
     Indication: ANXIETY
     Route: 048
  10. WELLBUTRIN XL [Concomitant]
     Indication: DEPRESSION
     Route: 048
  11. CLONIDINE [Concomitant]
     Indication: BLOOD PRESSURE
     Route: 048
  12. LOMOTIL [Concomitant]
     Indication: DIARRHOEA
     Route: 048
  13. PREDNISONE [Concomitant]
     Indication: GASTRIC DISORDER
     Route: 048
  14. UNSPECIFIED MEDICATION [Concomitant]
     Indication: GASTRIC DISORDER
     Route: 048
  15. AVAPRO [Concomitant]
     Indication: BLOOD PRESSURE
     Route: 048

REACTIONS (5)
  - BACK PAIN [None]
  - BREAST CANCER [None]
  - DRUG ADMINISTERED AT INAPPROPRIATE SITE [None]
  - SURGERY [None]
  - WRONG TECHNIQUE IN DRUG USAGE PROCESS [None]
